FAERS Safety Report 18843867 (Version 2)
Quarter: 2021Q2

REPORT INFORMATION
  Report Type: Other
  Country: GB (occurrence: GB)
  Receive Date: 20210203
  Receipt Date: 20210427
  Transmission Date: 20210717
  Serious: Yes (Death, Other)
  Sender: FDA-Public Use
  Company Number: GB-CELLTRION INC.-2021GB001024

PATIENT

DRUGS (44)
  1. TRASTUZUMAB EMTANSINE [Suspect]
     Active Substance: ADO-TRASTUZUMAB EMTANSINE
     Indication: HER2 POSITIVE BREAST CANCER
     Dosage: 180 MG, EVERY 3 WEEKS (DISEASE PROGRESSION, FURTHER ANTICANCER TREATMENT)
     Route: 042
     Dates: start: 20180904, end: 20190830
  2. CAPECITABINE. [Suspect]
     Active Substance: CAPECITABINE
     Indication: HER2 POSITIVE BREAST CANCER
     Dosage: 2500 MG
     Route: 048
     Dates: start: 20191016
  3. CANDESARTAN. [Concomitant]
     Active Substance: CANDESARTAN
     Dosage: 16 MG
     Route: 048
     Dates: end: 20180723
  4. PARACETAMOL [Concomitant]
     Active Substance: ACETAMINOPHEN
     Dosage: 1 G, 0.25 DAY
     Route: 048
     Dates: end: 20200701
  5. IRON ISOMALTOSIDE 1000 [Concomitant]
     Active Substance: IRON ISOMALTOSIDE 1000
     Indication: BLOOD IRON DECREASED
     Dosage: 100 MG, QD
     Route: 030
     Dates: start: 20180626, end: 20180627
  6. TRASTUZUMAB (UNKNOWN) [Suspect]
     Active Substance: TRASTUZUMAB
     Dosage: 350 MG, EVERY 3 WEEKS (INITIALLY TREATMENT INTERRUPTED DUE TO DECREASE EJECTION FRACTION AND THEN TR
     Route: 042
     Dates: start: 20160629, end: 20180524
  7. DOCETAXEL. [Suspect]
     Active Substance: DOCETAXEL
     Dosage: 100 MG, EVERY 3 WEEKS
     Route: 042
     Dates: start: 20160629, end: 20160720
  8. DOCETAXEL. [Suspect]
     Active Substance: DOCETAXEL
     Dosage: 85 MG, EVERY 3 WEEKS
     Route: 042
     Dates: start: 20160811, end: 20160831
  9. MORPHINE SULFATE. [Concomitant]
     Active Substance: MORPHINE SULFATE
     Dosage: 10 MG, 0.5 DAY
     Route: 048
     Dates: start: 20180822, end: 20200630
  10. SALBUTAMOL [Concomitant]
     Active Substance: ALBUTEROL
     Dosage: EVERY 0.5 DAY
     Dates: end: 20200701
  11. LOPERAMIDE [Concomitant]
     Active Substance: LOPERAMIDE
     Dosage: 2 MG, PRN
     Route: 048
     Dates: start: 20160516, end: 20200701
  12. NYSTATIN. [Concomitant]
     Active Substance: NYSTATIN
     Dosage: 0.25 DAY
     Route: 048
     Dates: start: 20160525, end: 20200701
  13. TRASTUZUMAB (UNKNOWN) [Suspect]
     Active Substance: TRASTUZUMAB
     Dosage: 400 MG, EVERY 3 WEEKS (DOSE AMENDED FOR WEIGHT)
     Route: 042
     Dates: start: 20160606, end: 20160606
  14. DOCETAXEL. [Suspect]
     Active Substance: DOCETAXEL
     Indication: HER2 POSITIVE BREAST CANCER
     Dosage: 124 MG, EVERY 3 WEEKS
     Route: 042
     Dates: start: 20160517, end: 20160609
  15. NERATINIB [Suspect]
     Active Substance: NERATINIB
     Indication: HER2 POSITIVE BREAST CANCER
     Dosage: 240 MG, QD
     Route: 048
     Dates: start: 20191016
  16. ZOLEDRONIC ACID. [Concomitant]
     Active Substance: ZOLEDRONIC ACID
     Indication: BACK PAIN
     Dosage: 4 MG
     Route: 042
     Dates: start: 20180822, end: 20191017
  17. DOMPERIDONE [Concomitant]
     Active Substance: DOMPERIDONE
     Dosage: 10 MG, EVERY 0.33 DAY
     Route: 048
     Dates: start: 20160512, end: 20160722
  18. BISOPROLOL [Concomitant]
     Active Substance: BISOPROLOL
     Dosage: 5 MG, QD
     Route: 048
     Dates: start: 20181030, end: 20200610
  19. CO?AMOXICLAV [AMOXICILLIN;CLAVULANATE POTASSIUM] [Concomitant]
     Active Substance: AMOXICILLIN\CLAVULANATE POTASSIUM
     Indication: RESPIRATORY TRACT INFECTION
     Dosage: 1 TABLET, 0.33 DAY
     Route: 048
     Dates: start: 20171108, end: 20171115
  20. FILGRASTIM [Concomitant]
     Active Substance: FILGRASTIM
     Indication: NEUTROPENIA
     Dosage: 300 MICROGRAM
     Route: 058
     Dates: start: 20160525, end: 20160827
  21. BENZYDAMINE HYDROCHLORIDE [Concomitant]
     Active Substance: BENZYDAMINE HYDROCHLORIDE
     Dosage: 15 MILLILITER
     Route: 060
     Dates: start: 20160525, end: 2017
  22. AMETOP [TETRACAINE] [Concomitant]
     Active Substance: TETRACAINE
     Dosage: 4 %
     Route: 061
     Dates: start: 20160831, end: 2019
  23. CYCLIZINE [Concomitant]
     Active Substance: CYCLIZINE
     Indication: DYSPHAGIA
     Dosage: 50 MG, 0.33 DAY
     Route: 048
     Dates: start: 20180619, end: 2018
  24. MENTHOL;PARAFFIN, LIQUID;PETROLATUM [Concomitant]
     Dosage: 2 %, 0.33 DAY
     Route: 061
     Dates: start: 20160525, end: 2016
  25. ZOPICLONE [Concomitant]
     Active Substance: ZOPICLONE
     Dosage: UNK
     Route: 048
     Dates: end: 2019
  26. CALCICHEW D3 FORTE [Concomitant]
     Active Substance: CALCIUM\CHOLECALCIFEROL
     Dosage: UNK, QD
     Route: 048
     Dates: start: 20180822, end: 20200701
  27. CARVEDILOL. [Concomitant]
     Active Substance: CARVEDILOL
     Dosage: 6.25 MG, 0.5 DAY
     Route: 048
     Dates: start: 20180724, end: 20181030
  28. CARVEDILOL. [Concomitant]
     Active Substance: CARVEDILOL
     Dosage: 12.5 MG, 0.5 DAY
     Dates: end: 20180621
  29. NAPROXEN. [Concomitant]
     Active Substance: NAPROXEN
     Dosage: 250 MG, 0.25 DAY
     Route: 048
     Dates: end: 2019
  30. TRASTUZUMAB (UNKNOWN) [Suspect]
     Active Substance: TRASTUZUMAB
     Indication: HER2 POSITIVE BREAST CANCER
     Dosage: 450 MG, 1 DAY (LOADING DOSE)
     Route: 042
     Dates: start: 20160516, end: 20160516
  31. IBUPROFEN. [Concomitant]
     Active Substance: IBUPROFEN
     Dosage: UNK
     Route: 048
     Dates: end: 2019
  32. LANSOPRAZOLE. [Concomitant]
     Active Substance: LANSOPRAZOLE
     Indication: DYSPHAGIA
     Dosage: 30 MG, QD
     Route: 048
     Dates: start: 20180619, end: 20200701
  33. CODEINE [Concomitant]
     Active Substance: CODEINE
     Dosage: 30 MG, EVERY 0.25 DAY
     Route: 048
     Dates: start: 20191009
  34. TRAMADOL. [Concomitant]
     Active Substance: TRAMADOL
     Dosage: 50 MG, 0.25 DAY
     Route: 048
     Dates: start: 20160429, end: 2019
  35. CARVEDILOL. [Concomitant]
     Active Substance: CARVEDILOL
     Indication: EJECTION FRACTION DECREASED
     Dosage: 37.5 MG, QD
     Route: 048
     Dates: start: 20180621, end: 20180724
  36. PERTUZUMAB. [Suspect]
     Active Substance: PERTUZUMAB
     Indication: HER2 POSITIVE BREAST CANCER
     Dosage: 840 MG (LOADING DOSE)
     Route: 042
     Dates: start: 20160516, end: 20160516
  37. CANDESARTAN. [Concomitant]
     Active Substance: CANDESARTAN
     Dosage: 8 MG, QD
     Route: 048
     Dates: start: 20180724, end: 20200610
  38. OMEPRAZOLE. [Concomitant]
     Active Substance: OMEPRAZOLE
     Dosage: 20 MG, 0.5 DAY
     Route: 048
     Dates: end: 20180619
  39. HYOSCINE N?BUTYLBROMIDE [Concomitant]
     Active Substance: BUTYLSCOPOLAMINE
     Indication: SALIVARY HYPERSECRETION
     Dosage: 20 MG, 0.33 DAY
     Route: 048
     Dates: start: 20180619, end: 20200701
  40. BUDESONIDE. [Concomitant]
     Active Substance: BUDESONIDE
     Dosage: 9 MG
     Route: 048
     Dates: start: 20191016, end: 2019
  41. PERTUZUMAB. [Suspect]
     Active Substance: PERTUZUMAB
     Dosage: 420 MG, EVERY 3 WEEKS (INITIALLY TREATMENT INTERRUPTED DUE TO DECREASE EJECTION FRACTION AND THEN TR
     Route: 042
     Dates: start: 20160606, end: 20180524
  42. CETIRIZINE [Concomitant]
     Active Substance: CETIRIZINE HYDROCHLORIDE
     Dosage: UNK
     Route: 048
     Dates: end: 2019
  43. DEXAMETHASONE. [Concomitant]
     Active Substance: DEXAMETHASONE
     Dosage: 8 MG, 0.5 DAY
     Route: 048
     Dates: start: 20160512, end: 201706
  44. MORPHINE SULFATE. [Concomitant]
     Active Substance: MORPHINE SULFATE
     Indication: BACK PAIN
     Dosage: 5 MG, PRN
     Route: 048
     Dates: start: 20180822, end: 20200630

REACTIONS (5)
  - Diarrhoea [Recovered/Resolved]
  - Disease progression [Fatal]
  - Mucosal inflammation [Not Recovered/Not Resolved]
  - Diarrhoea [Recovered/Resolved]
  - Deep vein thrombosis [Recovered/Resolved]

NARRATIVE: CASE EVENT DATE: 201606
